FAERS Safety Report 5535754-4 (Version None)
Quarter: 2007Q4

REPORT INFORMATION
  Report Type: 
  Country: None (occurrence: None)
  Receive Date: 20071206
  Receipt Date: 20070328
  Transmission Date: 20080405
  Serious: Yes (Hospitalization)
  Sender: FDA-Public Use
  Company Number: US-AMGEN-STX198048

PATIENT
  Sex: Female
  Weight: 62.7 kg

DRUGS (2)
  1. ENBREL [Suspect]
     Indication: JUVENILE ARTHRITIS
     Route: 058
     Dates: start: 20020101, end: 20060720
  2. ORTHO-NOVUM [Concomitant]
     Indication: ORAL CONTRACEPTION
     Route: 048
     Dates: start: 20061211

REACTIONS (1)
  - PAPILLARY THYROID CANCER [None]
